FAERS Safety Report 14038995 (Version 2)
Quarter: 2017Q4

REPORT INFORMATION
  Report Type: Report from Study
  Country: MX (occurrence: MX)
  Receive Date: 20171004
  Receipt Date: 20171011
  Transmission Date: 20180321
  Serious: Yes (Other)
  Sender: FDA-Public Use
  Company Number: PHHY2017MX122337

PATIENT
  Age: 51 Year
  Sex: Female
  Weight: 65 kg

DRUGS (4)
  1. LOSARTAN. [Concomitant]
     Active Substance: LOSARTAN
     Indication: HYPERTENSION
     Dosage: 2 DF, QD
     Route: 048
     Dates: start: 2012
  2. GALVUS MET [Suspect]
     Active Substance: METFORMIN HYDROCHLORIDE\VILDAGLIPTIN
     Dosage: 2 DF (850 MG METFORMIN AND 50 MG VILDAGLIPTIN), QD
     Route: 048
     Dates: start: 20170926
  3. METFORMIN [Suspect]
     Active Substance: METFORMIN HYDROCHLORIDE
     Indication: PRODUCT USED FOR UNKNOWN INDICATION
     Dosage: 1 DF (850 MG), Q8H
     Route: 065
  4. GALVUS MET [Suspect]
     Active Substance: METFORMIN HYDROCHLORIDE\VILDAGLIPTIN
     Indication: DIABETES MELLITUS
     Dosage: 2 DF (850 MG METFORMIN AND 50 MG VILDAGLIPTIN), QD
     Route: 048
     Dates: start: 2014, end: 20170919

REACTIONS (8)
  - Diabetes mellitus inadequate control [Unknown]
  - Salmonellosis [Recovered/Resolved]
  - Blood glucose increased [Recovered/Resolved]
  - Menopause [Not Recovered/Not Resolved]
  - Headache [Unknown]
  - Anaemia [Recovered/Resolved]
  - Malaise [Unknown]
  - Urinary tract infection [Recovering/Resolving]

NARRATIVE: CASE EVENT DATE: 2016
